FAERS Safety Report 7041326-5 (Version None)
Quarter: 2010Q3

REPORT INFORMATION
  Report Type: 
  Country: None (occurrence: None)
  Receive Date: 20100929
  Receipt Date: 20100820
  Transmission Date: 20110219
  Serious: No
  Sender: FDA-Public Use
  Company Number: US-WYE-H17109010

PATIENT
  Age: 31 Year
  Sex: Female

DRUGS (4)
  1. PRISTIQ [Suspect]
     Indication: DEPRESSION
     Dosage: ONE-HALF OF PILL
     Dates: start: 20090101, end: 20100801
  2. PRISTIQ [Suspect]
     Indication: DEPRESSION
     Dosage: ONE-HALF OF PILL
     Dates: start: 20100801
  3. HYDROCODONE BITARTRATE AND ACETAMINOPHEN [Suspect]
     Indication: PAIN
     Dosage: 5/500 MG
     Dates: start: 20100801
  4. NABUMETONE [Suspect]
     Indication: PAIN
     Dosage: 750 MG
     Dates: start: 20100801

REACTIONS (9)
  - DIZZINESS [None]
  - DRUG INTERACTION [None]
  - DRUG WITHDRAWAL SYNDROME [None]
  - DYSARTHRIA [None]
  - INTENTIONAL DRUG MISUSE [None]
  - NAUSEA [None]
  - PAIN [None]
  - RIB FRACTURE [None]
  - WRONG TECHNIQUE IN DRUG USAGE PROCESS [None]
